FAERS Safety Report 4784801-6 (Version None)
Quarter: 2005Q3

REPORT INFORMATION
  Report Type: 
  Country: None (occurrence: None)
  Receive Date: 20050928
  Receipt Date: 20050920
  Transmission Date: 20060218
  Serious: Yes (Other)
  Sender: FDA-Public Use
  Company Number: 2005131091

PATIENT
  Age: 47 Year
  Sex: Male
  Weight: 104.3273 kg

DRUGS (7)
  1. LIPITOR [Suspect]
     Indication: BLOOD CHOLESTEROL INCREASED
     Dosage: 10 MG (10 MG, 1 IN 1 D), ORAL
     Route: 048
     Dates: start: 20040101
  2. PLAVIX [Concomitant]
  3. ASPIRIN [Concomitant]
  4. LEVOTHYROXINE SODIUM [Concomitant]
  5. FAMOTIDINE [Concomitant]
  6. HYDROCHLOROTHIAZIDE/TRIAMTERENE (HYDOCHLOROTHIAZIDE, TRIAMTERENE) [Concomitant]
  7. NIASPAN [Concomitant]

REACTIONS (4)
  - CATHETERISATION CARDIAC [None]
  - CONDITION AGGRAVATED [None]
  - DEPRESSION [None]
  - MEMORY IMPAIRMENT [None]
